FAERS Safety Report 6584804-5 (Version None)
Quarter: 2010Q1

REPORT INFORMATION
  Report Type: 
  Country: None (occurrence: None)
  Receive Date: 20100204
  Receipt Date: 20100120
  Transmission Date: 20100710
  Serious: Yes (Disabling)
  Sender: FDA-Public Use
  Company Number: 8054937

PATIENT
  Sex: Male

DRUGS (6)
  1. KEPPRA [Suspect]
     Indication: GENERALISED NON-CONVULSIVE EPILEPSY
     Dosage: (250 MG BID ORAL), (500 MG BID ORAL)
     Route: 048
     Dates: start: 20090601, end: 20090601
  2. KEPPRA [Suspect]
     Indication: GENERALISED NON-CONVULSIVE EPILEPSY
     Dosage: (250 MG BID ORAL), (500 MG BID ORAL)
     Route: 048
     Dates: start: 20090612, end: 20091027
  3. UNSPECIFIED ANTI-EPILEPTIC TREATMENTS [Concomitant]
  4. BI PRETERAX [Concomitant]
  5. LEVOTHYROX [Concomitant]
  6. PREVISCAN /00789001/ [Concomitant]

REACTIONS (1)
  - HYPERSOMNIA [None]
